FAERS Safety Report 7511483-2 (Version None)
Quarter: 2011Q2

REPORT INFORMATION
  Report Type: 
  Country: None (occurrence: None)
  Receive Date: 20110531
  Receipt Date: 20110520
  Transmission Date: 20111010
  Serious: Yes (Hospitalization)
  Sender: FDA-Public Use
  Company Number: US-US-EMD SERONO, INC.-7060742

PATIENT
  Sex: Female

DRUGS (2)
  1. TRILEPTAL [Concomitant]
     Indication: BIPOLAR DISORDER
     Dates: end: 20110501
  2. REBIF [Suspect]
     Indication: MULTIPLE SCLEROSIS
     Route: 058
     Dates: start: 20100506, end: 20110422

REACTIONS (8)
  - TREMOR [None]
  - DYSARTHRIA [None]
  - MULTIPLE SCLEROSIS [None]
  - HAEMATOCHEZIA [None]
  - CATATONIA [None]
  - BLOOD POTASSIUM DECREASED [None]
  - SPEECH DISORDER [None]
  - HYPERTENSION [None]
